FAERS Safety Report 12130426 (Version 1)
Quarter: 2016Q1

REPORT INFORMATION
  Report Type: Spontaneous
  Country: US (occurrence: US)
  Receive Date: 20160301
  Receipt Date: 20160301
  Transmission Date: 20160526
  Serious: No
  Sender: FDA-Public Use
  Company Number: US-ACORDA-ACO_23114_2010

PATIENT
  Age: 63 Year
  Sex: Male
  Weight: 96 kg

DRUGS (7)
  1. AMPYRA [Suspect]
     Active Substance: DALFAMPRIDINE
     Indication: MULTIPLE SCLEROSIS
     Dosage: 10 MG, BID
     Route: 048
     Dates: start: 20100417
  2. MEDICATION FOR HYPERTENSION [Concomitant]
     Dosage: DF
  3. BACLOFEN. [Concomitant]
     Active Substance: BACLOFEN
     Dosage: 20 OR 30 MG
  4. AMPYRA [Suspect]
     Active Substance: DALFAMPRIDINE
     Indication: SPINAL CORD INJURY
  5. ZOCOR [Concomitant]
     Active Substance: SIMVASTATIN
     Dosage: DF
  6. AMBIEN [Concomitant]
     Active Substance: ZOLPIDEM TARTRATE
     Dosage: DF
  7. XANAX [Concomitant]
     Active Substance: ALPRAZOLAM
     Dosage: 0.05 MG - 0.1 MG

REACTIONS (3)
  - Product use issue [Unknown]
  - Therapeutic response unexpected [Unknown]
  - Insomnia [Recovering/Resolving]

NARRATIVE: CASE EVENT DATE: 201004
